FAERS Safety Report 10249154 (Version 2)
Quarter: 2014Q3

REPORT INFORMATION
  Report Type: Spontaneous
  Country: IT (occurrence: IT)
  Receive Date: 20140620
  Receipt Date: 20140908
  Transmission Date: 20150326
  Serious: Yes (Other)
  Sender: FDA-Public Use
  Company Number: ALCN2014IT003520

PATIENT
  Age: 62 Year
  Sex: Female

DRUGS (2)
  1. AZOPT [Suspect]
     Active Substance: BRINZOLAMIDE
     Indication: VITRECTOMY
     Dosage: 3 GTT, QD
     Route: 047
     Dates: start: 20131002, end: 20131003
  2. LUXAZONE [Suspect]
     Active Substance: DEXAMETHASONE
     Indication: VITRECTOMY
     Dosage: 3 GTT, QD
     Route: 047
     Dates: start: 20131002, end: 20131003

REACTIONS (1)
  - Hypoaesthesia [Recovering/Resolving]

NARRATIVE: CASE EVENT DATE: 20131003
